FAERS Safety Report 8206917-4 (Version None)
Quarter: 2012Q1

REPORT INFORMATION
  Report Type: 
  Country: None (occurrence: None)
  Receive Date: 20120314
  Receipt Date: 20120307
  Transmission Date: 20120608
  Serious: Yes (Hospitalization)
  Sender: FDA-Public Use
  Company Number: US-GENZYME-MOZO-1000619

PATIENT

DRUGS (14)
  1. CLARITIN-D [Concomitant]
     Indication: MULTIPLE ALLERGIES
     Dosage: UNK
     Route: 048
  2. VITAMIN D [Concomitant]
     Indication: PRODUCT USED FOR UNKNOWN INDICATION
     Dosage: 2000 IU, QD
     Route: 048
  3. MOZOBIL [Suspect]
     Indication: MYELODYSPLASTIC SYNDROME
     Dosage: 440 MCG/KG, QD
     Route: 058
     Dates: start: 20111212, end: 20111216
  4. TYLENOL [Concomitant]
     Indication: PYREXIA
  5. NEUPOGEN [Concomitant]
     Indication: MYELODYSPLASTIC SYNDROME
     Dosage: 5 MCG/KG, QD
     Route: 058
     Dates: start: 20111212, end: 20111216
  6. FISH OIL [Concomitant]
     Indication: PRODUCT USED FOR UNKNOWN INDICATION
     Dosage: 1000 MG, BID
     Route: 048
  7. SODIUM CHLORIDE [Concomitant]
     Indication: INTRAVENOUS CATHETER MANAGEMENT
     Dosage: 0.9 %, TID
     Route: 040
     Dates: start: 20111222
  8. ACYCLOVIR [Concomitant]
     Indication: PROPHYLAXIS
     Dosage: 400 MG, TID
     Route: 048
     Dates: start: 20111223
  9. ACYCLOVIR [Concomitant]
     Dosage: 400 MG, QD
     Route: 048
  10. MAGNESIUM HYDROXIDE TAB [Concomitant]
     Indication: CONSTIPATION
     Dosage: 15 ML, PRN
     Route: 048
     Dates: start: 20111222
  11. AZACITIDINE [Concomitant]
     Indication: MYELODYSPLASTIC SYNDROME
     Dosage: 75 MG/M2, QD
     Route: 058
     Dates: start: 20111212, end: 20111216
  12. TYLENOL [Concomitant]
     Indication: PAIN
     Dosage: 650 MG, PRN
     Route: 065
  13. SODIUM CHLORIDE [Concomitant]
     Indication: DENTAL DISORDER PROPHYLAXIS
     Dosage: 0.9 %, QID
     Route: 050
     Dates: start: 20111222
  14. ONDANSETRON [Concomitant]
     Indication: NAUSEA
     Dosage: 4 MG, PRN
     Route: 048

REACTIONS (3)
  - ANAEMIA [None]
  - FEBRILE NEUTROPENIA [None]
  - THROMBOCYTOPENIA [None]
